FAERS Safety Report 24642738 (Version 1)
Quarter: 2024Q4

REPORT INFORMATION
  Report Type: Spontaneous
  Country: ES (occurrence: ES)
  Receive Date: 20241120
  Receipt Date: 20241120
  Transmission Date: 20250115
  Serious: Yes (Other)
  Sender: SANDOZ
  Company Number: ES-NOVPHALC-ALCN2017ES004233

PATIENT
  Age: 2 Year
  Sex: Female

DRUGS (1)
  1. TOBREX [Suspect]
     Active Substance: TOBRAMYCIN
     Indication: Conjunctivitis
     Dosage: UNK
     Route: 047
     Dates: start: 20170702

REACTIONS (5)
  - Eye haemorrhage [Unknown]
  - Ocular hyperaemia [Unknown]
  - Eye discharge [Unknown]
  - Product label issue [Unknown]
  - Product container seal issue [Unknown]

NARRATIVE: CASE EVENT DATE: 20170701
